FAERS Safety Report 16214445 (Version 2)
Quarter: 2020Q2

REPORT INFORMATION
  Report Type: Spontaneous
  Country: US (occurrence: US)
  Receive Date: 20190418
  Receipt Date: 20200408
  Transmission Date: 20200713
  Serious: Yes (Other)
  Sender: FDA-Public Use
  Company Number: US-GILEAD-2019-0402945

PATIENT
  Age: 36 Year
  Sex: Male

DRUGS (20)
  1. PSEUDOEPHEDRINE. [Concomitant]
     Active Substance: PSEUDOEPHEDRINE HYDROCHLORIDE
  2. AUGMENTIN BAMBINI [Concomitant]
     Active Substance: AMOXICILLIN\CLAVULANIC ACID
  3. COLACE [Concomitant]
     Active Substance: DOCUSATE SODIUM
  4. CHLORHEXIDINE ACETATE [Concomitant]
     Active Substance: CHLORHEXIDINE ACETATE
  5. ZIDOVUDINE. [Concomitant]
     Active Substance: ZIDOVUDINE
  6. TRUVADA [Suspect]
     Active Substance: EMTRICITABINE\TENOFOVIR DISOPROXIL FUMARATE
     Dosage: UNK
     Route: 065
     Dates: start: 201401, end: 201801
  7. GENVOYA [Concomitant]
     Active Substance: COBICISTAT\ELVITEGRAVIR\EMTRICITABINE\TENOFOVIR ALAFENAMIDE FUMARATE
  8. DARUNAVIR [Concomitant]
     Active Substance: DARUNAVIR
  9. DEBROX [Concomitant]
     Active Substance: CARBAMIDE PEROXIDE
  10. RITONAVIR. [Concomitant]
     Active Substance: RITONAVIR
  11. PREZISTA [Concomitant]
     Active Substance: DARUNAVIR ETHANOLATE
  12. ATRIPLA [Suspect]
     Active Substance: EFAVIRENZ\EMTRICITABINE\TENOFOVIR DISOPROXIL FUMARATE
     Indication: HIV INFECTION
     Dosage: UNK
     Route: 048
     Dates: start: 2008, end: 2015
  13. TRUVADA [Suspect]
     Active Substance: EMTRICITABINE\TENOFOVIR DISOPROXIL FUMARATE
     Indication: HIV INFECTION
     Dosage: UNK
     Route: 048
     Dates: start: 2005, end: 2008
  14. ATAZANAVIR. [Concomitant]
     Active Substance: ATAZANAVIR
  15. IBUPROFEN. [Concomitant]
     Active Substance: IBUPROFEN
  16. RALTEGRAVIR. [Concomitant]
     Active Substance: RALTEGRAVIR
  17. ATRIPLA [Suspect]
     Active Substance: EFAVIRENZ\EMTRICITABINE\TENOFOVIR DISOPROXIL FUMARATE
     Dosage: UNK
     Route: 065
     Dates: start: 200610, end: 201401
  18. DESCOVY [Concomitant]
     Active Substance: EMTRICITABINE\TENOFOVIR ALAFENAMIDE FUMARATE
  19. BACITRACIN. [Concomitant]
     Active Substance: BACITRACIN
  20. PENICILLIN V POTASSIUM. [Concomitant]
     Active Substance: PENICILLIN V POTASSIUM

REACTIONS (7)
  - Bone density decreased [Recovered/Resolved]
  - Anxiety [Unknown]
  - Pain [Unknown]
  - Chronic kidney disease [Not Recovered/Not Resolved]
  - Economic problem [Unknown]
  - Anhedonia [Unknown]
  - Emotional distress [Unknown]

NARRATIVE: CASE EVENT DATE: 201401
